FAERS Safety Report 8614035-6 (Version None)
Quarter: 2012Q3

REPORT INFORMATION
  Report Type: 
  Country: None (occurrence: None)
  Receive Date: 20120823
  Receipt Date: 20120810
  Transmission Date: 20120928
  Serious: Yes (Other)
  Sender: FDA-Public Use
  Company Number: JP-MERCK-1208JPN005498

PATIENT

DRUGS (7)
  1. MUCOSTA [Concomitant]
     Dosage: 100 MG, TIW
     Route: 048
     Dates: start: 20101117, end: 20110916
  2. REBETOL [Suspect]
     Dosage: 200 MG, BID
     Route: 048
     Dates: start: 20101122, end: 20110916
  3. INTERFERON BETA NOS [Suspect]
     Dosage: 6 MILLION IU, TIW
     Dates: start: 20101117, end: 20110916
  4. MUCOSTA [Concomitant]
     Indication: GASTRITIS PROPHYLAXIS
     Dosage: 100 MG, QD
     Route: 048
     Dates: start: 20101018, end: 20101115
  5. PEGASYS [Concomitant]
     Indication: HEPATITIS C
     Dosage: 90 MICROGRAM, BIW
     Route: 058
     Dates: start: 20111017
  6. INTERFERON BETA NOS [Suspect]
     Indication: HEPATITIS C
     Dosage: 6 MILLION IU, QD
     Dates: start: 20101018, end: 20101115
  7. REBETOL [Suspect]
     Indication: HEPATITIS C
     Dosage: 200MG 400MG IN EVENING IN MORNING
     Route: 048
     Dates: start: 20101018, end: 20101121

REACTIONS (5)
  - HAEMOGLOBIN DECREASED [None]
  - WHITE BLOOD CELL COUNT DECREASED [None]
  - PYREXIA [None]
  - NEUTROPHIL COUNT DECREASED [None]
  - HYPOTHYROIDISM [None]
